FAERS Safety Report 21358734 (Version 2)
Quarter: 2023Q1

REPORT INFORMATION
  Report Type: Spontaneous
  Country: NL (occurrence: NL)
  Receive Date: 20220921
  Receipt Date: 20230104
  Transmission Date: 20230418
  Serious: Yes (Life-Threatening, Hospitalization, Other)
  Sender: FDA-Public Use
  Company Number: NL-MLMSERVICE-20220909-3781738-1

PATIENT
  Age: 41 Year
  Sex: Female
  Weight: 65 kg

DRUGS (4)
  1. QUETIAPINE [Suspect]
     Active Substance: QUETIAPINE
     Route: 048
  2. TOPIRAMATE [Suspect]
     Active Substance: TOPIRAMATE
     Route: 048
  3. VENLAFAXINE [Suspect]
     Active Substance: VENLAFAXINE HYDROCHLORIDE
     Dosage: RETARD
     Route: 048
  4. DESLORATADINE [Concomitant]
     Active Substance: DESLORATADINE
     Route: 048

REACTIONS (7)
  - Toxicity to various agents [Unknown]
  - Seizure [Recovered/Resolved]
  - Intentional overdose [Unknown]
  - Hypotension [Recovered/Resolved]
  - Metabolic acidosis [Recovered/Resolved]
  - Coma [Recovered/Resolved]
  - Respiratory failure [Recovered/Resolved]
